FAERS Safety Report 21579781 (Version 1)
Quarter: 2022Q4

REPORT INFORMATION
  Report Type: Spontaneous
  Country: GB (occurrence: GB)
  Receive Date: 20221110
  Receipt Date: 20221110
  Transmission Date: 20230112
  Serious: Yes (Hospitalization)
  Sender: FDA-Public Use
  Company Number: None

PATIENT
  Age: 89 Year

DRUGS (10)
  1. LANSOPRAZOLE [Suspect]
     Active Substance: LANSOPRAZOLE
     Indication: Product used for unknown indication
     Dosage: EVERY MORNING
  2. AMITRIPTYLINE [Concomitant]
     Active Substance: AMITRIPTYLINE
     Dosage: AT NIGHT
  3. CETIRIZINE [Concomitant]
     Active Substance: CETIRIZINE HYDROCHLORIDE
     Dosage: IN THE MORNING
  4. CALCIUM\CHOLECALCIFEROL [Concomitant]
     Active Substance: CALCIUM\CHOLECALCIFEROL
     Dosage: EVERY MORNING
  5. IBUPROFEN [Concomitant]
     Active Substance: IBUPROFEN
  6. LOPERAMIDE [Concomitant]
     Active Substance: LOPERAMIDE
     Dosage: TWO TO BE TAKEN IMMEDIATELY THEN ONE TO BE TAKEN AFTER EACH LOOSE MOTION
  7. NITROFURANTOIN [Concomitant]
     Active Substance: NITROFURANTOIN
     Indication: Urinary tract infection
     Dosage: AT NIGHT
  8. UREA AND LAUROMACROGOLS [Concomitant]
  9. FENBID [Concomitant]
     Dosage: APPLY UP TO THREE TIMES A DAY 5 GRAM
  10. E45 ITCH RELIEF [Concomitant]
     Dosage: APPLY TWICE A DAY

REACTIONS (1)
  - Osteoporosis [Unknown]
